FAERS Safety Report 7801739-8 (Version None)
Quarter: 2011Q4

REPORT INFORMATION
  Report Type: 
  Country: None (occurrence: None)
  Receive Date: 20111004
  Receipt Date: 20110110
  Transmission Date: 20120403
  Serious: Yes (Other)
  Sender: FDA-Public Use
  Company Number: 2010GW000844

PATIENT
  Age: 46 Year
  Sex: Female
  Weight: 115.6 kg

DRUGS (21)
  1. ZYFLO [Suspect]
     Indication: ASTHMA
     Dosage: 1200 MG;TID
  2. THEOPHYLLINE [Suspect]
     Indication: ASTHMA
     Dosage: 200 MG;QAM ; 400 MG;HS
  3. RHINOCORT [Suspect]
     Indication: SEASONAL ALLERGY
     Dosage: 32 UG;QD
  4. B12 /00056201/ [Concomitant]
  5. PERCOCET [Concomitant]
  6. MULTI-VITAMINS [Concomitant]
  7. ADVAIR HFA [Suspect]
     Indication: ASTHMA
     Dosage: BID
  8. MEDROL [Suspect]
     Indication: SINUSITIS
  9. NEXIUM [Concomitant]
  10. MILNACIPRAN HYDROCHLORIDE (MILNACIPRAN HYDROCHLORIDE) [Suspect]
     Indication: FIBROMYALGIA
     Dosage: 200 MG;BID ; 12.5 MG;QD ; 12.5 MG;BID ; 50 MG;BID ; 50 MG;BID ; 100 MG;BID
     Dates: start: 20100601, end: 20100601
  11. MILNACIPRAN HYDROCHLORIDE (MILNACIPRAN HYDROCHLORIDE) [Suspect]
     Indication: FIBROMYALGIA
     Dosage: 200 MG;BID ; 12.5 MG;QD ; 12.5 MG;BID ; 50 MG;BID ; 50 MG;BID ; 100 MG;BID
     Dates: start: 20100601, end: 20100601
  12. MILNACIPRAN HYDROCHLORIDE (MILNACIPRAN HYDROCHLORIDE) [Suspect]
     Indication: FIBROMYALGIA
     Dosage: 200 MG;BID ; 12.5 MG;QD ; 12.5 MG;BID ; 50 MG;BID ; 50 MG;BID ; 100 MG;BID
     Dates: start: 20100801, end: 20100914
  13. MILNACIPRAN HYDROCHLORIDE (MILNACIPRAN HYDROCHLORIDE) [Suspect]
     Indication: FIBROMYALGIA
     Dosage: 200 MG;BID ; 12.5 MG;QD ; 12.5 MG;BID ; 50 MG;BID ; 50 MG;BID ; 100 MG;BID
     Dates: start: 20100601, end: 20100601
  14. MILNACIPRAN HYDROCHLORIDE (MILNACIPRAN HYDROCHLORIDE) [Suspect]
     Indication: FIBROMYALGIA
     Dosage: 200 MG;BID ; 12.5 MG;QD ; 12.5 MG;BID ; 50 MG;BID ; 50 MG;BID ; 100 MG;BID
     Dates: start: 20100601, end: 20100601
  15. MILNACIPRAN HYDROCHLORIDE (MILNACIPRAN HYDROCHLORIDE) [Suspect]
     Indication: FIBROMYALGIA
     Dosage: 200 MG;BID ; 12.5 MG;QD ; 12.5 MG;BID ; 50 MG;BID ; 50 MG;BID ; 100 MG;BID
     Dates: start: 20100701, end: 20100801
  16. MAXAIR [Suspect]
     Indication: ASTHMA
     Dosage: BID;INH
     Route: 055
  17. XYZAL [Concomitant]
  18. RELPAX [Concomitant]
  19. TOPAMAX [Concomitant]
  20. CALCIUM WITH VITAMIN D /00944201/ [Concomitant]
  21. PULMICORT [Suspect]
     Indication: ASTHMA
     Dosage: 180 UG;BID

REACTIONS (5)
  - DRUG PRESCRIBING ERROR [None]
  - OVERDOSE [None]
  - CATARACT [None]
  - SINUSITIS [None]
  - BLOOD PRESSURE INCREASED [None]
